FAERS Safety Report 18104438 (Version 1)
Quarter: 2020Q3

REPORT INFORMATION
  Report Type: Spontaneous
  Country: US (occurrence: US)
  Receive Date: 20200803
  Receipt Date: 20200803
  Transmission Date: 20201103
  Serious: Yes (Hospitalization)
  Sender: FDA-Public Use
  Company Number: None

PATIENT
  Age: 68 Year
  Sex: Female

DRUGS (12)
  1. METFORMIN [Concomitant]
     Active Substance: METFORMIN HYDROCHLORIDE
  2. METOPROLOL. [Concomitant]
     Active Substance: METOPROLOL
  3. OLMESA MEDOX [Concomitant]
  4. FORTEO [Suspect]
     Active Substance: TERIPARATIDE
     Indication: OSTEOPOROSIS
     Route: 058
  5. POT CITRATE [Concomitant]
     Active Substance: POTASSIUM CITRATE
  6. OXYBUTYNIN. [Concomitant]
     Active Substance: OXYBUTYNIN CHLORIDE
  7. ALPRAZOLAM. [Concomitant]
     Active Substance: ALPRAZOLAM
  8. CEPHALEXIN. [Concomitant]
     Active Substance: CEPHALEXIN
  9. CYCLOBENZAPRINE. [Concomitant]
     Active Substance: CYCLOBENZAPRINE
  10. PREDNISONE. [Concomitant]
     Active Substance: PREDNISONE
  11. MUPIROCIN. [Concomitant]
     Active Substance: MUPIROCIN
  12. OMEPRAZOLE. [Concomitant]
     Active Substance: OMEPRAZOLE

REACTIONS (2)
  - Surgical procedure repeated [None]
  - Knee arthroplasty [None]

NARRATIVE: CASE EVENT DATE: 20200528
